FAERS Safety Report 4504966-0 (Version None)
Quarter: 2004Q4

REPORT INFORMATION
  Report Type: 
  Country: None (occurrence: None)
  Receive Date: 20041020
  Receipt Date: 20040728
  Transmission Date: 20050328
  Serious: No
  Sender: FDA-Public Use
  Company Number: 2004-06-1625

PATIENT
  Sex: Female

DRUGS (1)
  1. CLARINEX [Suspect]
     Dosage: 1 TABLET ORAL
     Route: 048
     Dates: start: 20040620

REACTIONS (1)
  - SENSATION OF FOREIGN BODY [None]
